FAERS Safety Report 24221195 (Version 1)
Quarter: 2024Q3

REPORT INFORMATION
  Report Type: Spontaneous
  Country: GB (occurrence: GB)
  Receive Date: 20240819
  Receipt Date: 20240819
  Transmission Date: 20241016
  Serious: Yes (Other)
  Sender: DEXCEL
  Company Number: None

PATIENT
  Age: 90 Year
  Sex: Female

DRUGS (1)
  1. OMEPRAZOLE [Suspect]
     Active Substance: OMEPRAZOLE
     Dosage: 20MG OD ORAL USE

REACTIONS (1)
  - Hyponatraemia [Unknown]
